FAERS Safety Report 9434888 (Version 13)
Quarter: 2014Q2

REPORT INFORMATION
  Report Type: Spontaneous
  Country: CN (occurrence: CN)
  Receive Date: 20130801
  Receipt Date: 20140521
  Transmission Date: 20141212
  Serious: Yes (Life-Threatening, Hospitalization, Other)
  Sender: FDA-Public Use
  Company Number: CN-ROCHE-1255534

PATIENT
  Age: 50 Year
  Sex: Female
  Weight: 58 kg

DRUGS (12)
  1. HERCEPTIN [Suspect]
     Indication: BREAST CANCER
     Route: 041
     Dates: start: 20130522, end: 20130522
  2. HERCEPTIN [Suspect]
     Route: 041
     Dates: start: 20130613, end: 20130613
  3. HERCEPTIN [Suspect]
     Route: 041
     Dates: start: 20130705, end: 20130705
  4. EXEMESTANE [Concomitant]
     Indication: BREAST CANCER
     Route: 048
     Dates: start: 20130613
  5. ZOLEDRONATE SODIUM [Concomitant]
     Indication: BREAST CANCER
     Route: 041
     Dates: start: 20130613
  6. ZOLEDRONATE SODIUM [Concomitant]
     Indication: METASTASES TO BONE
  7. ADEFOVIR DIPIVOXIL [Concomitant]
     Indication: HEPATITIS B
     Route: 048
  8. DOXIFLURIDINE [Concomitant]
     Indication: BREAST CANCER
     Route: 048
     Dates: start: 20130613
  9. DOCETAXEL [Concomitant]
     Dosage: AFTER THE SURGERY OF RIGHT BREAST MASS RESECTION AND RIGHT JAW LYMPHADENECTOMY
     Route: 065
     Dates: start: 2009
  10. DOCETAXEL [Concomitant]
     Dosage: AFTER THE SURGERY OF RIGHT BREAST MASS RESECTION AND RIGHT JAW LYMPHADENECTOMY
     Route: 065
     Dates: start: 2009
  11. OXALIPLATIN [Concomitant]
     Dosage: AFTER THE SURGERY OF RIGHT BREAST MASS RESECTION AND RIGHT JAW LYMPHADENECTOMY
     Route: 065
     Dates: start: 2009
  12. OXALIPLATIN [Concomitant]
     Dosage: AFTER THE SURGERY OF RIGHT BREAST MASS RESECTION AND RIGHT JAW LYMPHADENECTOMY
     Route: 065
     Dates: start: 2009

REACTIONS (14)
  - Liver injury [Recovering/Resolving]
  - Drug-induced liver injury [Recovering/Resolving]
  - Hepatic failure [Recovering/Resolving]
  - Abdominal infection [Recovering/Resolving]
  - Hepatitis B [Recovering/Resolving]
  - Hepatic encephalopathy [Unknown]
  - Respiratory tract infection fungal [Unknown]
  - Hepatic cancer metastatic [Unknown]
  - Hepatic cirrhosis [Unknown]
  - Splenomegaly [Unknown]
  - Ascites [Unknown]
  - Cholecystitis chronic [Unknown]
  - Pleural effusion [Unknown]
  - Deafness [Not Recovered/Not Resolved]
